FAERS Safety Report 8393255-2 (Version None)
Quarter: 2012Q2

REPORT INFORMATION
  Report Type: 
  Country: None (occurrence: None)
  Receive Date: 20120529
  Receipt Date: 20120516
  Transmission Date: 20120825
  Serious: Yes (Other)
  Sender: FDA-Public Use
  Company Number: CA-ROCHE-1069126

PATIENT
  Sex: Female

DRUGS (7)
  1. XOLAIR [Suspect]
     Indication: ASTHMA
     Route: 058
     Dates: start: 20120504
  2. ALLEGRA [Concomitant]
  3. NORVASC [Concomitant]
  4. TECTAL (UNK INGREDIANT) [Concomitant]
  5. SYMBICORT [Concomitant]
  6. COZAAR [Concomitant]
  7. VENTOLIN [Concomitant]

REACTIONS (11)
  - ABDOMINAL PAIN UPPER [None]
  - OROPHARYNGEAL PAIN [None]
  - DIZZINESS [None]
  - SWOLLEN TONGUE [None]
  - THROAT IRRITATION [None]
  - HEADACHE [None]
  - ANXIETY [None]
  - DISCOMFORT [None]
  - NASAL OBSTRUCTION [None]
  - ARTHRALGIA [None]
  - PHARYNGEAL OEDEMA [None]
